FAERS Safety Report 9495480 (Version 2)
Quarter: 2013Q4

REPORT INFORMATION
  Report Type: Spontaneous
  Country: US (occurrence: US)
  Receive Date: 20130903
  Receipt Date: 20131008
  Transmission Date: 20140711
  Serious: Yes (Other)
  Sender: FDA-Public Use
  Company Number: US-BAYER-2013-106311

PATIENT
  Sex: Female
  Weight: 52.15 kg

DRUGS (2)
  1. ALKA-SELTZER FRUIT CHEWS [Suspect]
     Indication: DYSPEPSIA
     Dosage: 1 DF, ONCE
     Route: 048
     Dates: start: 20130828, end: 20130828
  2. BAYER ASPIRIN REGIMEN ADULT LOW STRENGTH [Concomitant]
     Indication: ISCHAEMIC HEART DISEASE PROPHYLAXIS
     Dosage: UNK

REACTIONS (1)
  - Choking [Recovered/Resolved]
